FAERS Safety Report 5110169-1 (Version None)
Quarter: 2006Q3

REPORT INFORMATION
  Report Type: 
  Country: None (occurrence: None)
  Receive Date: 20060921
  Receipt Date: 20060829
  Transmission Date: 20061208
  Serious: Yes (Hospitalization)
  Sender: FDA-Public Use
  Company Number: JP-AVENTIS-200612675JP

PATIENT
  Age: 67 Year
  Sex: Female
  Weight: 45 kg

DRUGS (8)
  1. LASIX [Suspect]
     Route: 048
     Dates: end: 20060726
  2. LANIRAPID [Concomitant]
     Route: 048
     Dates: end: 20060726
  3. LOCHOL [Concomitant]
     Route: 048
     Dates: end: 20060726
  4. URINORM [Concomitant]
     Route: 048
     Dates: end: 20060726
  5. ACETAMINOPHEN [Concomitant]
     Route: 048
     Dates: end: 20060726
  6. ALOSENN [Concomitant]
     Route: 048
     Dates: end: 20060726
  7. PURSENNID [Concomitant]
     Route: 048
     Dates: end: 20060726
  8. WARFARIN [Concomitant]
     Indication: ATRIAL FIBRILLATION
     Route: 048

REACTIONS (1)
  - TOXIC EPIDERMAL NECROLYSIS [None]
